FAERS Safety Report 5273575-0 (Version None)
Quarter: 2007Q1

REPORT INFORMATION
  Report Type: 
  Country: None (occurrence: None)
  Receive Date: 20070321
  Receipt Date: 20070321
  Transmission Date: 20070707
  Serious: Yes (Death)
  Sender: FDA-Public Use
  Company Number: None

PATIENT
  Sex: Female
  Weight: 89.2 kg

DRUGS (1)
  1. SUTENT [Suspect]
     Indication: RENAL CELL CARCINOMA STAGE UNSPECIFIED
     Dosage: 12.5MG DAILY PO
     Route: 048
     Dates: start: 20070205, end: 20070220

REACTIONS (8)
  - ASTHENIA [None]
  - CARDIAC ARREST [None]
  - CARDIAC OUTPUT DECREASED [None]
  - CARDIOGENIC SHOCK [None]
  - CHEST PAIN [None]
  - CORONARY ARTERY DISEASE [None]
  - FATIGUE [None]
  - SINUS BRADYCARDIA [None]
